FAERS Safety Report 14777494 (Version 1)
Quarter: 2018Q2

REPORT INFORMATION
  Report Type: Spontaneous
  Country: US (occurrence: US)
  Receive Date: 20180419
  Receipt Date: 20180419
  Transmission Date: 20180711
  Serious: Yes (Other)
  Sender: FDA-Public Use
  Company Number: US-AMGEN-USASP2018051578

PATIENT
  Age: 88 Year
  Sex: Male

DRUGS (2)
  1. CORLANOR [Suspect]
     Active Substance: IVABRADINE HYDROCHLORIDE
     Dosage: 2.5 MG, BID (FOR THREE DOSES)
     Route: 065
     Dates: start: 201804
  2. CORLANOR [Suspect]
     Active Substance: IVABRADINE HYDROCHLORIDE
     Indication: LEFT VENTRICULAR FAILURE
     Dosage: 5 MG, BID
     Route: 065
     Dates: start: 20180413

REACTIONS (4)
  - Heart rate increased [Unknown]
  - Vision blurred [Not Recovered/Not Resolved]
  - Urinary retention [Recovered/Resolved]
  - Dysuria [Unknown]

NARRATIVE: CASE EVENT DATE: 201804
